FAERS Safety Report 4910608-2 (Version None)
Quarter: 2006Q1

REPORT INFORMATION
  Report Type: 
  Country: None (occurrence: None)
  Receive Date: 20060214
  Receipt Date: 20060209
  Transmission Date: 20060701
  Serious: Yes (Life-Threatening)
  Sender: FDA-Public Use
  Company Number: US-ABBOTT-06P-163-0324588-00

PATIENT
  Sex: Male
  Weight: 115 kg

DRUGS (13)
  1. HUMIRA [Suspect]
     Indication: RHEUMATOID ARTHRITIS
     Route: 058
     Dates: start: 20050406, end: 20050406
  2. FUROSEMIDE [Concomitant]
     Indication: FLUID RETENTION
     Route: 048
     Dates: start: 19960101
  3. WARFARIN SODIUM [Concomitant]
     Indication: THROMBOSIS PROPHYLAXIS
     Route: 048
     Dates: start: 19960101
  4. ATORVASTATIN CALCIUM [Concomitant]
     Indication: BLOOD CHOLESTEROL INCREASED
     Dates: start: 19980101
  5. LISINOPRIL [Concomitant]
     Indication: HYPERTENSION
     Dates: start: 19960101
  6. AMLODIPINE BESYLATE [Concomitant]
     Indication: HYPERTENSION
     Dates: start: 19960101
  7. POTASSIUM ER [Concomitant]
     Indication: CORONARY ARTERY DISEASE
     Dates: start: 19870101
  8. AMIODARONE [Concomitant]
     Indication: ARRHYTHMIA
     Dates: start: 19960101
  9. LEVOTHYROXINE SODIUM [Concomitant]
     Indication: THYROID DISORDER
     Dates: start: 19980101
  10. FEXOFENADINE HYDROCHLORIDE [Concomitant]
     Indication: HYPERSENSITIVITY
     Dates: start: 20030101
  11. METHOTREXATE [Concomitant]
     Indication: RHEUMATOID ARTHRITIS
     Route: 030
     Dates: start: 20030101, end: 20030101
  12. PREDNISONE [Concomitant]
     Indication: INFLAMMATION
     Dates: start: 20030101
  13. METOPROLOL SUCCINATE [Concomitant]
     Indication: HYPERTENSION
     Dates: start: 19960101

REACTIONS (4)
  - BREATH SOUNDS ABNORMAL [None]
  - CARDIOMYOPATHY [None]
  - OEDEMA PERIPHERAL [None]
  - WEIGHT INCREASED [None]
